FAERS Safety Report 8228646-3 (Version None)
Quarter: 2012Q1

REPORT INFORMATION
  Report Type: 
  Country: None (occurrence: None)
  Receive Date: 20120322
  Receipt Date: 20110513
  Transmission Date: 20120608
  Serious: Yes (Life-Threatening, Hospitalization)
  Sender: FDA-Public Use
  Company Number: US-BRISTOL-MYERS SQUIBB COMPANY-15546500

PATIENT
  Age: 50 Year
  Sex: Male
  Weight: 97 kg

DRUGS (8)
  1. FUROSEMIDE [Concomitant]
  2. HYDRATION [Concomitant]
  3. PROCHLORPERAZINE MALEATE [Concomitant]
  4. ERBITUX [Suspect]
     Indication: LARYNGEAL CANCER
     Dosage: ERBITUX INFUSION  ROUTE:LEFT ANTIABICAL #24GAUGE ANGIOCATH
     Route: 042
     Dates: start: 20110404
  5. CISPLATIN [Concomitant]
     Indication: LARYNGEAL CANCER
     Dates: start: 20110404
  6. DEXAMETHASONE [Concomitant]
  7. DEXAMETHASONE SODIUM PHOSPHATE [Concomitant]
  8. ONDANSETRON HCL [Concomitant]

REACTIONS (1)
  - INFUSION RELATED REACTION [None]
